FAERS Safety Report 8382978-7 (Version None)
Quarter: 2012Q2

REPORT INFORMATION
  Report Type: 
  Country: None (occurrence: None)
  Receive Date: 20120524
  Receipt Date: 20120521
  Transmission Date: 20120825
  Serious: Yes (Other)
  Sender: FDA-Public Use
  Company Number: PHEH2012US007842

PATIENT
  Sex: Male

DRUGS (8)
  1. ASPIRIN [Concomitant]
     Dosage: 81 MG, UNK
  2. THIOCTIC ACID [Concomitant]
     Dosage: 300 MG, UNK
  3. SIMVASTATIN [Concomitant]
  4. GLEEVEC [Suspect]
     Indication: CHRONIC MYELOID LEUKAEMIA
     Dosage: 400 MG, QD
     Route: 048
     Dates: start: 20120113
  5. GLUCOSAMINE SULFATE W/CHONDROITIN [Concomitant]
  6. MULTI-VITAMINS [Concomitant]
  7. VITAMIN D [Concomitant]
  8. FISH OIL [Concomitant]
     Route: 048

REACTIONS (4)
  - ARTHRALGIA [None]
  - BACK PAIN [None]
  - INTERVERTEBRAL DISC PROTRUSION [None]
  - STAPHYLOCOCCAL INFECTION [None]
